FAERS Safety Report 13457822 (Version 2)
Quarter: 2017Q2

REPORT INFORMATION
  Report Type: Spontaneous
  Country: CH (occurrence: CH)
  Receive Date: 20170419
  Receipt Date: 20170425
  Transmission Date: 20170830
  Serious: Yes (Life-Threatening, Hospitalization)
  Sender: FDA-Public Use
  Company Number: CH-ALVOGEN-2017-ALVOGEN-091964

PATIENT
  Age: 83 Year
  Sex: Female

DRUGS (7)
  1. ALDACTONE [Suspect]
     Active Substance: SPIRONOLACTONE
     Indication: ESSENTIAL HYPERTENSION
     Route: 048
     Dates: start: 201701, end: 20170326
  2. LISINOPRIL. [Suspect]
     Active Substance: LISINOPRIL
     Indication: ESSENTIAL HYPERTENSION
     Route: 048
     Dates: end: 20170326
  3. BELOC ZOK [Suspect]
     Active Substance: METOPROLOL SUCCINATE
     Indication: CARDIAC FAILURE
     Route: 048
     Dates: end: 20170326
  4. DIGOXIN. [Suspect]
     Active Substance: DIGOXIN
     Indication: PRODUCT USED FOR UNKNOWN INDICATION
     Route: 048
     Dates: end: 20170326
  5. TORASEMIDE [Suspect]
     Active Substance: TORSEMIDE
     Indication: ESSENTIAL HYPERTENSION
     Route: 048
     Dates: end: 20170326
  6. AMLODIPINE [Suspect]
     Active Substance: AMLODIPINE BESYLATE
     Indication: ESSENTIAL HYPERTENSION
     Route: 048
     Dates: end: 20170326
  7. CARDURA CR [Suspect]
     Active Substance: DOXAZOSIN MESYLATE
     Indication: ESSENTIAL HYPERTENSION
     Route: 048
     Dates: start: 201701, end: 20170326

REACTIONS (10)
  - Bradycardia [Recovered/Resolved]
  - Cardiac failure [Unknown]
  - Hyperkalaemia [Recovered/Resolved]
  - Delirium [Not Recovered/Not Resolved]
  - Bundle branch block right [Unknown]
  - Atrioventricular block second degree [Unknown]
  - Hyponatraemia [Recovered/Resolved]
  - Renal failure [Recovered/Resolved]
  - Lactic acidosis [Recovered/Resolved]
  - Overdose [Recovered/Resolved]

NARRATIVE: CASE EVENT DATE: 20170325
